FAERS Safety Report 8080768-6 (Version None)
Quarter: 2012Q1

REPORT INFORMATION
  Report Type: 
  Country: None (occurrence: None)
  Receive Date: 20120130
  Receipt Date: 20120127
  Transmission Date: 20120608
  Serious: No
  Sender: FDA-Public Use
  Company Number: PHEH2012US002385

PATIENT
  Age: 51 Year
  Sex: Female

DRUGS (5)
  1. TASIGNA [Suspect]
     Indication: CHRONIC MYELOID LEUKAEMIA
     Dosage: 150 MG, BID
  2. DIOVAN [Concomitant]
  3. MULTIVITAMIN [Concomitant]
  4. PREMPRO [Suspect]
     Dosage: UNK
  5. LEXAPRO [Concomitant]

REACTIONS (1)
  - HEADACHE [None]
